FAERS Safety Report 7356458-1 (Version None)
Quarter: 2011Q1

REPORT INFORMATION
  Report Type: 
  Country: None (occurrence: None)
  Receive Date: 20110316
  Receipt Date: 20110209
  Transmission Date: 20110831
  Serious: Yes (Other)
  Sender: FDA-Public Use
  Company Number: GB-BAYER-2011-018705

PATIENT
  Age: 66 Year
  Sex: Male

DRUGS (19)
  1. NAPROXEN SODIUM [Suspect]
     Dosage: UNK
     Dates: start: 20110124
  2. SALBUTAMOL [Concomitant]
     Dosage: UNK
     Dates: start: 20101101, end: 20101129
  3. AMLODIPINE [Concomitant]
     Dosage: UNK
     Dates: start: 20101005
  4. ATENOLOL [Concomitant]
     Dosage: UNK
     Dates: start: 20101005
  5. METFORMIN HCL [Concomitant]
     Dosage: UNK
     Dates: start: 20101005
  6. AMBIEN [Concomitant]
     Dosage: UNK
     Dates: start: 20101005
  7. INSULIN ASPART [Concomitant]
     Dosage: UNK
     Dates: start: 20101005
  8. PIOGLITAZONE [Concomitant]
     Dosage: UNK
     Dates: start: 20101005
  9. SIMVASTATIN [Concomitant]
     Dosage: UNK
     Dates: start: 20101005
  10. AMOXICILLIN [Concomitant]
     Dosage: UNK
     Dates: start: 20110124
  11. PARACETAMOL [Concomitant]
     Dosage: UNK
     Dates: start: 20101027, end: 20110104
  12. GLYCERYL TRINITRATE [Concomitant]
     Dosage: UNK
     Dates: start: 20101005
  13. RAMIPRIL [Concomitant]
     Dosage: UNK
     Dates: start: 20101005
  14. MORPHINE [Concomitant]
     Dosage: UNK
     Dates: start: 20101209
  15. ALUMINIUM CHLORIDE [Concomitant]
     Dosage: UNK
     Dates: start: 20101101, end: 20101102
  16. ASPIRIN [Concomitant]
     Dosage: UNK
     Dates: start: 20101005
  17. CODEINE SULFATE [Concomitant]
     Dosage: UNK
     Dates: start: 20101027, end: 20110104
  18. FRUSEMIDE [Concomitant]
     Dosage: UNK
     Dates: start: 20101005
  19. LANSOPRAZOLE [Concomitant]
     Dosage: UNK
     Dates: start: 20101005

REACTIONS (4)
  - VOMITING [None]
  - MALAISE [None]
  - NAUSEA [None]
  - ABDOMINAL PAIN [None]
